FAERS Safety Report 12701104 (Version 1)
Quarter: 2016Q3

REPORT INFORMATION
  Report Type: Spontaneous
  Country: None (occurrence: None)
  Receive Date: 20160830
  Receipt Date: 20160830
  Transmission Date: 20161109
  Serious: Yes (Other)
  Sender: FDA-Public Use
  Company Number: None

PATIENT
  Age: 57 Year
  Sex: Female
  Weight: 72.58 kg

DRUGS (7)
  1. TYLENOL [Concomitant]
     Active Substance: ACETAMINOPHEN
  2. VITAMIN D3 [Concomitant]
     Active Substance: CHOLECALCIFEROL
  3. RECLAST [Suspect]
     Active Substance: ZOLEDRONIC ACID
     Indication: OSTEOPOROSIS
     Dosage: ONCE A YEAR  INTO A VEIN
     Route: 042
     Dates: start: 20160720
  4. STATIN [Concomitant]
     Active Substance: UNSPECIFIED INGREDIENT
  5. THYROID MEDICATION [Concomitant]
     Active Substance: UNSPECIFIED INGREDIENT
  6. METHOTREXATE. [Concomitant]
     Active Substance: METHOTREXATE
  7. VITAMN B12 [Concomitant]

REACTIONS (6)
  - Chest pain [None]
  - Dyspnoea [None]
  - Nausea [None]
  - Pruritus generalised [None]
  - Alopecia [None]
  - Rash [None]

NARRATIVE: CASE EVENT DATE: 20160720
